FAERS Safety Report 12304334 (Version 2)
Quarter: 2016Q2

REPORT INFORMATION
  Report Type: Spontaneous
  Country: US (occurrence: JP)
  Receive Date: 20160426
  Receipt Date: 20160426
  Transmission Date: 20160815
  Serious: Yes (Hospitalization)
  Sender: FDA-Public Use
  Company Number: US-009507513-1604JPN004292

PATIENT

DRUGS (2)
  1. DORAL [Concomitant]
     Active Substance: QUAZEPAM
     Indication: INSOMNIA
     Dosage: DAILY DOSAGE UNKNOWN
     Route: 048
     Dates: start: 201604
  2. BELSOMRA [Suspect]
     Active Substance: SUVOREXANT
     Indication: INSOMNIA
     Dosage: 15 MG, ONCE A DAY
     Route: 048
     Dates: end: 201604

REACTIONS (3)
  - Insomnia [Recovering/Resolving]
  - Drug ineffective [Unknown]
  - Adverse event [Unknown]

NARRATIVE: CASE EVENT DATE: 201604
